FAERS Safety Report 7109852-8 (Version None)
Quarter: 2010Q4

REPORT INFORMATION
  Report Type: 
  Country: None (occurrence: None)
  Receive Date: 20101118
  Receipt Date: 20101109
  Transmission Date: 20110411
  Serious: Yes (Hospitalization)
  Sender: FDA-Public Use
  Company Number: US-BAXTER-2010BH025451

PATIENT
  Age: 85 Year
  Sex: Female

DRUGS (2)
  1. GAMMAGARD LIQUID [Suspect]
     Indication: PRODUCT USED FOR UNKNOWN INDICATION
     Route: 065
     Dates: start: 20101007, end: 20101007
  2. GAMMAGARD LIQUID [Suspect]
     Route: 065
     Dates: start: 20101007, end: 20101007

REACTIONS (2)
  - PANCREATITIS ACUTE [None]
  - URTICARIA [None]
